FAERS Safety Report 4909068-7 (Version None)
Quarter: 2006Q1

REPORT INFORMATION
  Report Type: 
  Country: None (occurrence: None)
  Receive Date: 20060213
  Receipt Date: 20060201
  Transmission Date: 20060701
  Serious: Yes (Hospitalization)
  Sender: FDA-Public Use
  Company Number: ES-ABBOTT-06P-144-0323904-00

PATIENT
  Sex: Female

DRUGS (4)
  1. RITONAVIR SOFT GELATIN CAPSULES [Suspect]
     Indication: HIV INFECTION
     Route: 048
     Dates: start: 20030818, end: 20050205
  2. TIPRANAVIR [Concomitant]
     Indication: HIV INFECTION
     Route: 048
     Dates: start: 20030818, end: 20050208
  3. AMITRIPTYLINE HYDROCHLORIDE [Concomitant]
     Indication: HEADACHE
     Route: 048
     Dates: start: 20040226
  4. CARBAMAZEPINE [Concomitant]
     Indication: EPILEPSY
     Route: 048
     Dates: start: 19990101

REACTIONS (2)
  - CERVICAL SPINAL STENOSIS [None]
  - NEUROTOXICITY [None]
